FAERS Safety Report 8319489-0 (Version None)
Quarter: 2012Q1

REPORT INFORMATION
  Report Type: 
  Country: None (occurrence: None)
  Receive Date: 20120315
  Receipt Date: 20110222
  Transmission Date: 20120608
  Serious: No
  Sender: FDA-Public Use
  Company Number: PHHY2011US05260

PATIENT
  Age: 40 Year
  Sex: Female

DRUGS (3)
  1. LEVOXYL [Concomitant]
  2. GILENYA [Suspect]
     Indication: MULTIPLE SCLEROSIS
     Dosage: 0.5 MG, QD, ORAL
  3. EFFEXOR XR [Concomitant]

REACTIONS (2)
  - PERIPHERAL COLDNESS [None]
  - OEDEMA PERIPHERAL [None]
